FAERS Safety Report 4605831-0 (Version None)
Quarter: 2005Q1

REPORT INFORMATION
  Report Type: 
  Country: None (occurrence: None)
  Receive Date: 20050311
  Receipt Date: 20050301
  Transmission Date: 20050727
  Serious: Yes (Other)
  Sender: FDA-Public Use
  Company Number: CA-AMGEN-US107434

PATIENT
  Sex: Male
  Weight: 48 kg

DRUGS (8)
  1. ARANESP [Suspect]
     Indication: RENAL FAILURE CHRONIC
     Route: 058
     Dates: start: 20030909, end: 20050105
  2. ATENOLOL [Concomitant]
  3. NIFEDIPINE [Concomitant]
  4. FERROUS GLUCONATE [Concomitant]
  5. KAYEXALATE [Concomitant]
  6. CALCIUM CARBONATE [Concomitant]
  7. ADALAT [Concomitant]
  8. DIURETICS [Concomitant]

REACTIONS (6)
  - ANISOCYTOSIS [None]
  - ANTI-ERYTHROPOIETIN ANTIBODY POSITIVE [None]
  - APLASIA PURE RED CELL [None]
  - PARVOVIRUS B19 SEROLOGY POSITIVE [None]
  - THERAPEUTIC RESPONSE DECREASED [None]
  - WEIGHT DECREASED [None]
